FAERS Safety Report 5916577-0 (Version None)
Quarter: 2008Q4

REPORT INFORMATION
  Report Type: 
  Country: None (occurrence: None)
  Receive Date: 20081013
  Receipt Date: 20081007
  Transmission Date: 20090506
  Serious: Yes (Hospitalization, Other)
  Sender: FDA-Public Use
  Company Number: US-MERCK-0809USA02421

PATIENT
  Age: 65 Year
  Sex: Male
  Weight: 96 kg

DRUGS (10)
  1. EMEND [Suspect]
     Route: 048
     Dates: start: 20080430
  2. EMEND [Suspect]
     Route: 048
  3. FLUOROURACIL AND LEUCOVORIN CALCIUM AND OXALIPLATIN [Concomitant]
     Route: 065
  4. ALOXI [Concomitant]
     Route: 042
     Dates: end: 20080819
  5. DECADRON [Concomitant]
     Route: 041
     Dates: end: 20080819
  6. TAXOL [Concomitant]
     Route: 042
     Dates: end: 20080819
  7. CARBOPLATIN [Concomitant]
     Route: 042
     Dates: end: 20080819
  8. AVASTIN [Concomitant]
     Route: 042
     Dates: end: 20080819
  9. ZANTAC [Concomitant]
     Route: 042
     Dates: end: 20080819
  10. BENADRYL [Concomitant]
     Route: 042
     Dates: end: 20080819

REACTIONS (3)
  - ABDOMINAL DISTENSION [None]
  - HICCUPS [None]
  - SMALL INTESTINAL OBSTRUCTION [None]
